FAERS Safety Report 6055744-5 (Version None)
Quarter: 2009Q1

REPORT INFORMATION
  Report Type: 
  Country: None (occurrence: None)
  Receive Date: 20090128
  Receipt Date: 20090115
  Transmission Date: 20090719
  Serious: Yes (Hospitalization)
  Sender: FDA-Public Use
  Company Number: FR-CELGENEUS-056-C5013-08120731

PATIENT
  Sex: Female
  Weight: 66 kg

DRUGS (11)
  1. REVLIMID [Suspect]
     Indication: MULTIPLE MYELOMA
     Route: 048
     Dates: start: 20081113, end: 20081209
  2. DEXAMETHASONE [Suspect]
     Indication: MULTIPLE MYELOMA
     Route: 048
     Dates: start: 20081113, end: 20081209
  3. IRBESARTAN [Concomitant]
     Indication: HYPERTENSION
     Route: 048
  4. DIFFU-K [Concomitant]
     Route: 048
  5. IKOREL [Concomitant]
     Indication: ANGINA PECTORIS
     Route: 048
  6. IMOVANE [Concomitant]
     Indication: INSOMNIA
     Route: 048
  7. EFFERALGAN [Concomitant]
     Route: 048
  8. IPERTEN [Concomitant]
     Indication: HYPERTENSION
     Route: 048
  9. LASILIX [Concomitant]
     Indication: HYPERTENSION
     Route: 048
  10. PLAVIX [Concomitant]
     Indication: DRUG USE FOR UNKNOWN INDICATION
     Route: 048
  11. XYZALE [Concomitant]
     Route: 048

REACTIONS (1)
  - DERMATITIS EXFOLIATIVE [None]
